FAERS Safety Report 8091858-6 (Version None)
Quarter: 2012Q1

REPORT INFORMATION
  Report Type: 
  Country: None (occurrence: None)
  Receive Date: 20120129
  Receipt Date: 20111206
  Transmission Date: 20120608
  Serious: No
  Sender: FDA-Public Use
  Company Number: US-ABBOTT-11P-163-0881124-00

PATIENT
  Age: 64 Year
  Sex: Male

DRUGS (5)
  1. MERCAPTOPURINE [Concomitant]
     Indication: CROHN'S DISEASE
     Route: 048
  2. ENTOCORT EC [Concomitant]
     Indication: CROHN'S DISEASE
     Dosage: IN THE MORNING
  3. HUMIRA [Suspect]
     Indication: CROHN'S DISEASE
     Dosage: LOADING DOSE
     Dates: start: 20111129
  4. PENTASA [Concomitant]
     Indication: CROHN'S DISEASE
     Route: 048
  5. VITAMIN B-12 [Concomitant]
     Indication: PRODUCT USED FOR UNKNOWN INDICATION
     Dosage: MONTHLY
     Route: 050

REACTIONS (1)
  - INJECTION SITE HAEMATOMA [None]
